FAERS Safety Report 4634052-0 (Version None)
Quarter: 2005Q2

REPORT INFORMATION
  Report Type: 
  Country: None (occurrence: None)
  Receive Date: 20050413
  Receipt Date: 20050404
  Transmission Date: 20051028
  Serious: Yes (Hospitalization)
  Sender: FDA-Public Use
  Company Number: US-JNJFOC-20050401476

PATIENT
  Age: 50 Year
  Sex: Female

DRUGS (3)
  1. TOPAMAX [Suspect]
  2. TOPAMAX [Suspect]
  3. LODINE [Concomitant]
     Indication: DRUG USE FOR UNKNOWN INDICATION
     Route: 065

REACTIONS (5)
  - ABASIA [None]
  - DYSSTASIA [None]
  - HEADACHE [None]
  - NECK PAIN [None]
  - TREMOR [None]
